FAERS Safety Report 17758074 (Version 1)
Quarter: 2020Q2

REPORT INFORMATION
  Report Type: Spontaneous
  Country: DE (occurrence: DE)
  Receive Date: 20200507
  Receipt Date: 20200507
  Transmission Date: 20200714
  Serious: Yes (Hospitalization, Other)
  Sender: FDA-Public Use
  Company Number: DE-PFIZER INC-2018145730

PATIENT
  Age: 61 Year
  Sex: Female

DRUGS (4)
  1. FRAGMIN [Suspect]
     Active Substance: DALTEPARIN SODIUM
     Indication: ATRIAL FIBRILLATION
     Dosage: 7000 IU, BID
     Route: 065
     Dates: start: 201803, end: 20180411
  2. ELIQUIS [Suspect]
     Active Substance: APIXABAN
     Indication: CEREBROVASCULAR ACCIDENT PROPHYLAXIS
     Dosage: 5 MG, BID
     Route: 065
     Dates: end: 20180401
  3. FRAGMIN [Suspect]
     Active Substance: DALTEPARIN SODIUM
     Dosage: UNK
  4. ELIQUIS [Suspect]
     Active Substance: APIXABAN
     Dosage: UNK
     Route: 065
     Dates: start: 20180410

REACTIONS (6)
  - Pain [Recovering/Resolving]
  - General physical health deterioration [Unknown]
  - Atrial fibrillation [Unknown]
  - Contusion [Recovering/Resolving]
  - Haemodynamic instability [Unknown]
  - Off label use [Unknown]

NARRATIVE: CASE EVENT DATE: 20180330
